FAERS Safety Report 25109230 (Version 1)
Quarter: 2025Q1

REPORT INFORMATION
  Report Type: Spontaneous
  Country: US (occurrence: US)
  Receive Date: 20250323
  Receipt Date: 20250323
  Transmission Date: 20250409
  Serious: No
  Sender: SANOFI AVENTIS
  Company Number: US-SA-2025SA083624

PATIENT
  Sex: Male
  Weight: 81.82 kg

DRUGS (17)
  1. DUPIXENT [Suspect]
     Active Substance: DUPILUMAB
     Indication: Dermatitis atopic
     Dosage: 300 MG, QOW
     Route: 058
     Dates: start: 20250107
  2. VITAMINS [Concomitant]
     Active Substance: VITAMINS
  3. POTASSIUM [Concomitant]
     Active Substance: POTASSIUM
  4. TRIAMCINOLONE ACETONIDE [Concomitant]
     Active Substance: TRIAMCINOLONE ACETONIDE
  5. HYDROXYZINE HYDROCHLORIDE [Concomitant]
     Active Substance: HYDROXYZINE HYDROCHLORIDE
  6. GEMTESA [Concomitant]
     Active Substance: VIBEGRON
  7. MAGNESIUM OXIDE [Concomitant]
     Active Substance: MAGNESIUM OXIDE
  8. FISH OIL [Concomitant]
     Active Substance: FISH OIL
  9. CARAFATE [Concomitant]
     Active Substance: SUCRALFATE
  10. FERROUS SULFATE [Concomitant]
     Active Substance: FERROUS SULFATE
  11. XIFAXAN [Concomitant]
     Active Substance: RIFAXIMIN
  12. LISINOPRIL [Concomitant]
     Active Substance: LISINOPRIL
  13. FENOFIBRATE [Concomitant]
     Active Substance: FENOFIBRATE
  14. PROTONIX [Concomitant]
     Active Substance: PANTOPRAZOLE SODIUM
  15. PROPRANOLOL HYDROCHLORIDE [Concomitant]
     Active Substance: PROPRANOLOL HYDROCHLORIDE
  16. FLOMAX [Concomitant]
     Active Substance: TAMSULOSIN HYDROCHLORIDE
  17. ROPINIROLE HYDROCHLORIDE [Concomitant]
     Active Substance: ROPINIROLE HYDROCHLORIDE

REACTIONS (2)
  - Rash macular [Not Recovered/Not Resolved]
  - Pruritus [Not Recovered/Not Resolved]

NARRATIVE: CASE EVENT DATE: 20250101
